FAERS Safety Report 19239146 (Version 3)
Quarter: 2022Q1

REPORT INFORMATION
  Report Type: Spontaneous
  Country: CA (occurrence: CA)
  Receive Date: 20210510
  Receipt Date: 20220211
  Transmission Date: 20220423
  Serious: Yes (Other)
  Sender: FDA-Public Use
  Company Number: CA-PFIZER INC-2018088638

PATIENT
  Age: 59 Year
  Sex: Female

DRUGS (16)
  1. XELJANZ [Interacting]
     Active Substance: TOFACITINIB CITRATE
     Indication: Rheumatoid arthritis
     Dosage: 5 MG, 2X/DAY
     Route: 048
     Dates: start: 20180220, end: 201804
  2. XELJANZ [Interacting]
     Active Substance: TOFACITINIB CITRATE
     Dosage: 5 MG, 2X/DAY
     Route: 048
     Dates: start: 20180429, end: 201807
  3. XELJANZ [Interacting]
     Active Substance: TOFACITINIB CITRATE
     Dosage: 5 MG, 2X/DAY
     Route: 048
     Dates: start: 2018, end: 201809
  4. XELJANZ [Interacting]
     Active Substance: TOFACITINIB CITRATE
     Dosage: 5 MG, 2X/DAY
     Route: 048
     Dates: start: 20181003, end: 201903
  5. XELJANZ [Interacting]
     Active Substance: TOFACITINIB CITRATE
     Dosage: 5 MG, 2X/DAY
     Route: 048
     Dates: start: 201903, end: 202001
  6. XELJANZ [Interacting]
     Active Substance: TOFACITINIB CITRATE
     Dosage: 5 MG, 2X/DAY(ON HOLD)
     Route: 048
     Dates: start: 2020, end: 202003
  7. XELJANZ [Interacting]
     Active Substance: TOFACITINIB CITRATE
     Dosage: UNK
  8. CLONAZEPAM [Concomitant]
     Active Substance: CLONAZEPAM
     Dosage: UNK, 1X/DAY (IN THE MORNING)
     Route: 065
  9. CLONAZEPAM [Concomitant]
     Active Substance: CLONAZEPAM
     Dosage: UNK
     Route: 065
  10. CORTISONE [Concomitant]
     Active Substance: CORTISONE
     Dosage: UNK
  11. COLLOIDAL SILVER [Concomitant]
     Active Substance: SILVER
     Dosage: UNK
     Route: 065
  12. TYLENOL COLD [DEXTROMETHORPHAN HYDROBROMIDE;PARACETAMOL;PSEUDOEPHEDRIN [Concomitant]
     Dosage: UNK
     Route: 065
  13. PLAQUENIL [Concomitant]
     Active Substance: HYDROXYCHLOROQUINE SULFATE
     Indication: Rheumatoid arthritis
     Dosage: 300 MG, DAILY
     Route: 048
  14. VITAMIN D [Concomitant]
     Active Substance: VITAMIN D NOS
     Dosage: UNK, 1X/DAY (IN THE MORNING)
  15. VITAMIN D [Concomitant]
     Active Substance: VITAMIN D NOS
     Dosage: UNK
     Route: 065
  16. VITAMIN C [Concomitant]
     Active Substance: ASCORBIC ACID
     Dosage: UNK
     Route: 065

REACTIONS (38)
  - Pneumonia [Unknown]
  - Wound infection [Recovering/Resolving]
  - Hamartoma [Unknown]
  - Therapeutic product effect incomplete [Unknown]
  - Condition aggravated [Not Recovered/Not Resolved]
  - Fatigue [Not Recovered/Not Resolved]
  - Somnolence [Unknown]
  - Influenza [Unknown]
  - Malaise [Recovered/Resolved]
  - Sinusitis [Unknown]
  - Ear pain [Unknown]
  - Headache [Recovered/Resolved]
  - Platelet count increased [Unknown]
  - Cystitis [Unknown]
  - Urinary tract infection [Recovered/Resolved]
  - Neck pain [Unknown]
  - Chest discomfort [Recovered/Resolved]
  - Muscle strain [Recovered/Resolved]
  - Rash [Not Recovered/Not Resolved]
  - Gastrooesophageal reflux disease [Unknown]
  - Back pain [Not Recovered/Not Resolved]
  - Nasopharyngitis [Unknown]
  - Nodule [Unknown]
  - Sensitivity to weather change [Recovered/Resolved]
  - Digestive enzyme abnormal [Unknown]
  - Epistaxis [Unknown]
  - Bronchitis [Unknown]
  - Infection [Not Recovered/Not Resolved]
  - Mass [Recovering/Resolving]
  - Dermatitis acneiform [Recovered/Resolved]
  - Abdominal discomfort [Unknown]
  - Irritable bowel syndrome [Unknown]
  - Acne [Not Recovered/Not Resolved]
  - Folliculitis [Unknown]
  - Hypersensitivity [Unknown]
  - Tinea pedis [Unknown]
  - Food interaction [Unknown]
  - Exposure to SARS-CoV-2 [Unknown]

NARRATIVE: CASE EVENT DATE: 20180101
